FAERS Safety Report 22536771 (Version 2)
Quarter: 2024Q1

REPORT INFORMATION
  Report Type: Spontaneous
  Country: US (occurrence: US)
  Receive Date: 20230608
  Receipt Date: 20240306
  Transmission Date: 20240410
  Serious: No
  Sender: FDA-Public Use
  Company Number: US-ELI_LILLY_AND_COMPANY-US202306002623

PATIENT

DRUGS (1)
  1. VERZENIO [Suspect]
     Active Substance: ABEMACICLIB
     Indication: Product used for unknown indication
     Dosage: UNK UNK, UNKNOWN
     Route: 065
     Dates: start: 202301

REACTIONS (6)
  - Abdominal pain upper [Recovered/Resolved]
  - Brain fog [Unknown]
  - Bone pain [Unknown]
  - Abdominal distension [Unknown]
  - Headache [Unknown]
  - Constipation [Unknown]
